FAERS Safety Report 9782354 (Version 1)
Quarter: 2013Q4

REPORT INFORMATION
  Report Type: Spontaneous
  Country: CH (occurrence: CH)
  Receive Date: 20131226
  Receipt Date: 20131226
  Transmission Date: 20140711
  Serious: Yes (Hospitalization)
  Sender: FDA-Public Use
  Company Number: PHHY2013CH150013

PATIENT
  Age: 83 Year
  Sex: Male
  Weight: 76 kg

DRUGS (9)
  1. CARBAMAZEPINE [Suspect]
     Indication: TRIGEMINAL NEURALGIA
     Dosage: UNK UKN, UNK
     Route: 048
     Dates: end: 201307
  2. EXFORGE [Suspect]
     Dosage: 1 DF, QD
     Route: 048
  3. TORASEMIDE [Suspect]
     Dosage: 5 MG, QD
     Route: 048
  4. ALDACTONE [Suspect]
     Dosage: 12.5 MG, QD
     Route: 048
  5. PREDNISONE [Suspect]
     Indication: POLYMYALGIA RHEUMATICA
     Dosage: 5 MG, QD
     Route: 048
  6. ZYTIGA [Suspect]
     Indication: PROSTATE CANCER
     Dosage: 750 MG, UNK
     Route: 048
     Dates: start: 20130530, end: 20130716
  7. ZYTIGA [Suspect]
     Dosage: 750 MG PER DAY
     Route: 048
     Dates: start: 20130729, end: 20130730
  8. RYTHMONORM [Suspect]
     Dosage: 300 MG, BID
     Route: 048
  9. CALCIMAGON D3 [Suspect]
     Dosage: 2500 MG, QD
     Route: 048

REACTIONS (1)
  - Liver injury [Recovered/Resolved]
